FAERS Safety Report 7876606-4 (Version None)
Quarter: 2011Q4

REPORT INFORMATION
  Report Type: 
  Country: None (occurrence: None)
  Receive Date: 20111031
  Receipt Date: 20111019
  Transmission Date: 20120403
  Serious: Yes (Other)
  Sender: FDA-Public Use
  Company Number: US-BAYER-2011-070662

PATIENT
  Age: 23 Year
  Sex: Female
  Weight: 48.526 kg

DRUGS (12)
  1. YAZ [Suspect]
     Indication: CONTRACEPTION
     Dosage: UNK
     Dates: start: 20021001, end: 20100101
  2. NSAID'S [Concomitant]
     Indication: ABDOMINAL PAIN
     Dosage: UNK UNK, PRN
  3. ASPIRIN [Concomitant]
  4. YASMIN [Suspect]
     Indication: CONTRACEPTION
     Dosage: UNK
     Dates: start: 20021001, end: 20100101
  5. YASMIN [Suspect]
     Indication: PREMENSTRUAL SYNDROME
  6. LEXAPRO [Concomitant]
  7. YAZ [Suspect]
     Indication: PREMENSTRUAL SYNDROME
  8. AMBIEN [Concomitant]
  9. YASMIN [Suspect]
     Indication: ACNE
  10. FEMCON FE [Concomitant]
  11. PREVACID [Concomitant]
     Indication: GASTROOESOPHAGEAL REFLUX DISEASE
  12. YAZ [Suspect]
     Indication: ACNE

REACTIONS (6)
  - INJURY [None]
  - PAIN [None]
  - GALLBLADDER DISORDER [None]
  - DYSPEPSIA [None]
  - BILIARY DYSKINESIA [None]
  - ABDOMINAL PAIN UPPER [None]
